FAERS Safety Report 15332426 (Version 2)
Quarter: 2018Q4

REPORT INFORMATION
  Report Type: Report from Study
  Country: DE (occurrence: DE)
  Receive Date: 20180829
  Receipt Date: 20181002
  Transmission Date: 20190204
  Serious: Yes (Hospitalization, Other)
  Sender: FDA-Public Use
  Company Number: DE-BAXTER-2018BAX022276

PATIENT
  Age: 64 Year
  Sex: Male
  Weight: 92.7 kg

DRUGS (35)
  1. ENDOXAN 1G [Suspect]
     Active Substance: CYCLOPHOSPHAMIDE
     Indication: DIFFUSE LARGE B-CELL LYMPHOMA
     Dosage: 1580 MG, INFUSION RATE 8.3 (ML/MIN)
     Route: 041
     Dates: start: 20180510, end: 20180510
  2. ENDOXAN 1G [Suspect]
     Active Substance: CYCLOPHOSPHAMIDE
     Dosage: 1590 MG, UNK
     Route: 041
     Dates: start: 20180412, end: 20180412
  3. DOXORUBICIN [Suspect]
     Active Substance: DOXORUBICIN
     Dosage: 106 MG, UNK
     Route: 041
     Dates: start: 20180412, end: 20180412
  4. VINCRISTINE [Suspect]
     Active Substance: VINCRISTINE
     Indication: DIFFUSE LARGE B-CELL LYMPHOMA
     Dosage: 2 MG, UNK
     Route: 041
     Dates: start: 20180412, end: 20180412
  5. VINCRISTINE [Suspect]
     Active Substance: VINCRISTINE
     Dosage: 2 MG, UNK
     Route: 041
     Dates: start: 20180510, end: 20180510
  6. RAMIPRIL. [Concomitant]
     Active Substance: RAMIPRIL
     Indication: HYPERTENSION
     Dosage: 5 MG, QD
     Route: 048
     Dates: start: 2010
  7. RIXIMYO [Suspect]
     Active Substance: RITUXIMAB
     Dosage: 800 MG, UNK
     Route: 041
     Dates: start: 20180425, end: 20180425
  8. VINCRISTINE [Suspect]
     Active Substance: VINCRISTINE
     Indication: PRODUCT USED FOR UNKNOWN INDICATION
     Dosage: 1 MG, UNK
     Route: 041
     Dates: start: 20180607, end: 20180607
  9. DOXORUBICIN [Suspect]
     Active Substance: DOXORUBICIN
     Indication: DIFFUSE LARGE B-CELL LYMPHOMA
     Dosage: 105 MG, UNK
     Route: 041
     Dates: start: 20180524, end: 20180524
  10. PANTOZOL [Concomitant]
     Active Substance: PANTOPRAZOLE SODIUM
     Indication: PROPHYLAXIS
     Dosage: 40 MG, QD
     Route: 048
  11. IRENAT [Concomitant]
     Active Substance: SODIUM PERCHLORATE
     Indication: PROPHYLAXIS
     Dosage: UNK
     Route: 048
     Dates: end: 20180414
  12. DOXORUBICIN [Suspect]
     Active Substance: DOXORUBICIN
     Indication: PRODUCT USED FOR UNKNOWN INDICATION
     Dosage: 104 MG, UNK
     Route: 041
     Dates: start: 20180607, end: 20180607
  13. RIXIMYO [Suspect]
     Active Substance: RITUXIMAB
     Indication: PRODUCT USED FOR UNKNOWN INDICATION
     Dosage: 800 MG, UNK
     Route: 041
     Dates: start: 20180620
  14. PREDNISONE. [Suspect]
     Active Substance: PREDNISONE
     Dosage: 100 MG, UNK
     Route: 048
     Dates: start: 20180621, end: 20180625
  15. NEULASTA [Concomitant]
     Active Substance: PEGFILGRASTIM
     Indication: PROPHYLAXIS
     Dosage: 6 MG, QD
     Route: 058
     Dates: start: 20180414
  16. ENDOXAN 1G [Suspect]
     Active Substance: CYCLOPHOSPHAMIDE
     Indication: PRODUCT USED FOR UNKNOWN INDICATION
     Dosage: 1580 MG, INFUSION RATE 8.3 (ML/MIN)
     Route: 041
     Dates: start: 20180426, end: 20180426
  17. DOXORUBICIN [Suspect]
     Active Substance: DOXORUBICIN
     Dosage: 104 MG, UNK
     Route: 041
     Dates: start: 20180621, end: 20180621
  18. RIXIMYO [Suspect]
     Active Substance: RITUXIMAB
     Indication: DIFFUSE LARGE B-CELL LYMPHOMA
     Dosage: 788 MG, UNK
     Route: 041
     Dates: start: 20180523, end: 20180523
  19. ENDOXAN 1G [Suspect]
     Active Substance: CYCLOPHOSPHAMIDE
     Dosage: 1550 MG, UNK
     Route: 041
     Dates: start: 20180621, end: 20180621
  20. DOXORUBICIN [Suspect]
     Active Substance: DOXORUBICIN
     Dosage: 105 MG, UNK
     Route: 041
     Dates: start: 20180510, end: 20180510
  21. VINCRISTINE [Suspect]
     Active Substance: VINCRISTINE
     Dosage: 2 MG, UNK
     Route: 041
     Dates: start: 20180524, end: 20180524
  22. ENDOXAN 1G [Suspect]
     Active Substance: CYCLOPHOSPHAMIDE
     Dosage: 1580 MG, UNK
     Route: 041
     Dates: start: 20180524, end: 20180524
  23. DOXORUBICIN [Suspect]
     Active Substance: DOXORUBICIN
     Dosage: 105 MG, UNK
     Route: 041
     Dates: start: 20180426, end: 20180426
  24. RIXIMYO [Suspect]
     Active Substance: RITUXIMAB
     Dosage: 800 MG, INFUSION RATE 70 (ML/MIN)
     Route: 041
     Dates: start: 20180509, end: 20180509
  25. RIXIMYO [Suspect]
     Active Substance: RITUXIMAB
     Dosage: 795 MG, UNK
     Route: 041
     Dates: start: 20180411, end: 20180411
  26. PREDNISONE. [Suspect]
     Active Substance: PREDNISONE
     Dosage: 100 MG, UNK
     Route: 048
     Dates: start: 20180411, end: 20180415
  27. PREDNISONE. [Suspect]
     Active Substance: PREDNISONE
     Dosage: 500 MG, UNK
     Route: 048
     Dates: start: 20180607, end: 20180611
  28. VINCRISTINE [Suspect]
     Active Substance: VINCRISTINE
     Dosage: 2 MG, UNK
     Route: 041
     Dates: start: 20180426, end: 20180426
  29. TARGIN [Concomitant]
     Active Substance: NALOXONE HYDROCHLORIDE\OXYCODONE HYDROCHLORIDE
     Indication: PROPHYLAXIS
     Dosage: DOSE: 2 (UNITS NOT REPORTED)?40/20 MG
     Route: 048
  30. ENDOXAN 1G [Suspect]
     Active Substance: CYCLOPHOSPHAMIDE
     Dosage: 1550 MG, UNK
     Route: 041
     Dates: start: 20180607, end: 20180607
  31. RIXIMYO [Suspect]
     Active Substance: RITUXIMAB
     Dosage: 776 MG, UNK
     Route: 041
     Dates: start: 20180606, end: 20180606
  32. PREDNISONE. [Suspect]
     Active Substance: PREDNISONE
     Indication: PRODUCT USED FOR UNKNOWN INDICATION
     Dosage: 500 MG, UNK
     Route: 048
     Dates: start: 20180510, end: 20180514
  33. PREDNISONE. [Suspect]
     Active Substance: PREDNISONE
     Indication: DIFFUSE LARGE B-CELL LYMPHOMA
     Dosage: 500 MG, UNK
     Route: 048
     Dates: start: 20180524, end: 20180528
  34. PREDNISONE. [Suspect]
     Active Substance: PREDNISONE
     Dosage: 100 MG, UNK
     Route: 048
     Dates: start: 20180425, end: 20180429
  35. ALLOPURINOL. [Concomitant]
     Active Substance: ALLOPURINOL
     Indication: HYPERURICAEMIA
     Dosage: 150 MG, QD
     Route: 048
     Dates: start: 2010

REACTIONS (10)
  - Decreased appetite [Not Recovered/Not Resolved]
  - Polyneuropathy [Not Recovered/Not Resolved]
  - Anaemia [Recovered/Resolved]
  - Arthralgia [Not Recovered/Not Resolved]
  - Pyrexia [Recovered/Resolved]
  - Pneumonitis [Recovering/Resolving]
  - Pneumonia [Recovered/Resolved with Sequelae]
  - Spinal fracture [Recovered/Resolved with Sequelae]
  - Dysgeusia [Not Recovered/Not Resolved]
  - Constipation [Not Recovered/Not Resolved]

NARRATIVE: CASE EVENT DATE: 20180412
